FAERS Safety Report 6600620-X (Version None)
Quarter: 2010Q1

REPORT INFORMATION
  Report Type: 
  Country: None (occurrence: None)
  Receive Date: 20100223
  Receipt Date: 20100223
  Transmission Date: 20100710
  Serious: Yes (Life-Threatening, Hospitalization)
  Sender: FDA-Public Use
  Company Number: None

PATIENT
  Age: 87 Year
  Sex: Male
  Weight: 55.3 kg

DRUGS (1)
  1. GLIMEPIRIDE [Suspect]
     Indication: DIABETES MELLITUS
     Dates: end: 20090714

REACTIONS (3)
  - DIABETIC COMA [None]
  - OEDEMA PERIPHERAL [None]
  - SHOCK HYPOGLYCAEMIC [None]
